FAERS Safety Report 8416996-7 (Version None)
Quarter: 2012Q2

REPORT INFORMATION
  Report Type: 
  Country: None (occurrence: None)
  Receive Date: 20120606
  Receipt Date: 20120604
  Transmission Date: 20120825
  Serious: Yes (Life-Threatening, Hospitalization, Disabling)
  Sender: FDA-Public Use
  Company Number: US-B.I. PHARMACEUTICALS,INC./RIDGEFIELD-2012-BP-10249BP

PATIENT
  Sex: Male
  Weight: 131 kg

DRUGS (7)
  1. OMEPRAZOLE [Concomitant]
     Indication: UPPER GASTROINTESTINAL HAEMORRHAGE
     Dosage: 20 MG
  2. ALLOPURINOL [Concomitant]
     Indication: GOUT
     Dosage: 300 MG
  3. CARVEDILOL [Concomitant]
     Indication: HEART RATE
     Dosage: 25 MG
  4. GLIPIZIDE [Concomitant]
     Indication: TYPE 2 DIABETES MELLITUS
     Dosage: 2.5 MG
  5. PRAVACHOL [Concomitant]
     Indication: BLOOD CHOLESTEROL INCREASED
  6. ONGLYZA [Concomitant]
     Indication: TYPE 2 DIABETES MELLITUS
     Dosage: 2.5 MG
  7. PRADAXA [Suspect]
     Indication: ATRIAL FIBRILLATION
     Dosage: 300 MG
     Route: 048
     Dates: start: 20120401, end: 20120504

REACTIONS (7)
  - ANAEMIA [None]
  - MELAENA [None]
  - GASTROINTESTINAL PAIN [None]
  - ABDOMINAL DISCOMFORT [None]
  - UPPER GASTROINTESTINAL HAEMORRHAGE [None]
  - RENAL FAILURE ACUTE [None]
  - NAUSEA [None]
